FAERS Safety Report 19273423 (Version 1)
Quarter: 2021Q2

REPORT INFORMATION
  Report Type: Spontaneous
  Country: US (occurrence: US)
  Receive Date: 20210519
  Receipt Date: 20210519
  Transmission Date: 20210717
  Serious: Yes (Life-Threatening, Other)
  Sender: FDA-Public Use
  Company Number: US-GRANULES-US-2021GRALIT00291

PATIENT
  Age: 32 Year
  Sex: Male

DRUGS (3)
  1. COLCHICINE. [Suspect]
     Active Substance: COLCHICINE
     Indication: PRODUCT USED FOR UNKNOWN INDICATION
     Dosage: BETWEEN 32.4MG (0.39 MG/KG) AND 54MG (0.65 MG/KG)
     Route: 048
  2. ACTIVATED CHARCOAL. [Interacting]
     Active Substance: ACTIVATED CHARCOAL
     Route: 065
  3. N?ACETYLCYSTEINE [Interacting]
     Active Substance: ACETYLCYSTEINE
     Route: 065

REACTIONS (13)
  - Electrolyte imbalance [Unknown]
  - Cardiovascular insufficiency [Unknown]
  - Toxicity to various agents [Unknown]
  - Overdose [Unknown]
  - Neutropenia [Unknown]
  - Acute hepatic failure [Recovered/Resolved]
  - Disseminated intravascular coagulation [Unknown]
  - Rhabdomyolysis [Unknown]
  - Acute kidney injury [Unknown]
  - Multiple organ dysfunction syndrome [Unknown]
  - Pancytopenia [Unknown]
  - Troponin I increased [Unknown]
  - Lactic acidosis [Unknown]
